FAERS Safety Report 7557743-0 (Version None)
Quarter: 2011Q2

REPORT INFORMATION
  Report Type: 
  Country: None (occurrence: None)
  Receive Date: 20110620
  Receipt Date: 20110614
  Transmission Date: 20111010
  Serious: Yes (Hospitalization)
  Sender: FDA-Public Use
  Company Number: DE-MERCK-1104DEU00069

PATIENT
  Age: 47 Year
  Sex: Male

DRUGS (13)
  1. PANCREATIN [Concomitant]
     Route: 065
  2. DOXAZOSIN MESYLATE [Concomitant]
     Route: 065
  3. PHENPROCOUMON [Concomitant]
     Route: 065
  4. SIMVASTATIN [Concomitant]
     Route: 048
  5. INSULIN LISPRO [Concomitant]
     Route: 065
  6. AMLODIPINE [Concomitant]
     Route: 065
  7. METOPROLOL [Concomitant]
     Route: 065
  8. CANDESARTAN CILEXETIL [Concomitant]
     Route: 065
  9. INSULIN HUMAN, ISOPHANE [Concomitant]
     Route: 065
  10. JANUVIA [Suspect]
     Indication: DIABETES MELLITUS
     Route: 048
     Dates: start: 20110401
  11. ASPIRIN [Concomitant]
     Route: 065
  12. DRONEDARONE HYDROCHLORIDE [Concomitant]
     Route: 065
  13. PANTOPRAZOLE [Concomitant]
     Route: 065

REACTIONS (2)
  - CONVULSION [None]
  - TREMOR [None]
